FAERS Safety Report 4777595-1 (Version None)
Quarter: 2005Q3

REPORT INFORMATION
  Report Type: 
  Country: None (occurrence: None)
  Receive Date: 20050921
  Receipt Date: 20050907
  Transmission Date: 20060218
  Serious: Yes (Hospitalization)
  Sender: FDA-Public Use
  Company Number: US015961

PATIENT
  Age: 51 Year
  Sex: Female

DRUGS (3)
  1. GABITRIL [Suspect]
     Indication: MIGRAINE PROPHYLAXIS
     Dosage: 12 MG QHS ORAL
     Route: 048
     Dates: start: 20040701
  2. GABITRIL [Suspect]
     Indication: MIGRAINE PROPHYLAXIS
  3. GABITRIL [Suspect]
     Indication: MIGRAINE PROPHYLAXIS
     Dosage: 40 MG QHS ORAL
     Route: 048
     Dates: end: 20050601

REACTIONS (7)
  - CONVULSION [None]
  - FOOD ALLERGY [None]
  - NAUSEA [None]
  - SPEECH DISORDER [None]
  - TREMOR [None]
  - UNRESPONSIVE TO VERBAL STIMULI [None]
  - VERTIGO [None]
